FAERS Safety Report 6326160-3 (Version None)
Quarter: 2009Q3

REPORT INFORMATION
  Report Type: 
  Country: None (occurrence: None)
  Receive Date: 20090824
  Receipt Date: 20090812
  Transmission Date: 20100115
  Serious: Yes (Other)
  Sender: FDA-Public Use
  Company Number: GB-PFIZER INC-2009253717

PATIENT
  Age: 25 Year

DRUGS (1)
  1. CHAMPIX [Suspect]

REACTIONS (3)
  - ANXIETY [None]
  - DISORIENTATION [None]
  - MOTOR DYSFUNCTION [None]
